FAERS Safety Report 14106780 (Version 1)
Quarter: 2017Q4

REPORT INFORMATION
  Report Type: Spontaneous
  Country: US (occurrence: US)
  Receive Date: 20171018
  Receipt Date: 20171018
  Transmission Date: 20180321
  Serious: Yes (Hospitalization)
  Sender: FDA-Public Use
  Company Number: None

PATIENT
  Age: 47 Year
  Sex: Female
  Weight: 69 kg

DRUGS (1)
  1. SILVER (COLLOIDAL) [Suspect]
     Active Substance: SILVER
     Indication: RESPIRATORY DISORDER
     Dosage: 15 ML Q4-6H NEBULIZER

REACTIONS (1)
  - Pneumonia [None]

NARRATIVE: CASE EVENT DATE: 20171017
